FAERS Safety Report 13398124 (Version 5)
Quarter: 2017Q3

REPORT INFORMATION
  Report Type: Report from Study
  Country: US (occurrence: US)
  Receive Date: 20170403
  Receipt Date: 20170912
  Transmission Date: 20171127
  Serious: Yes (Hospitalization)
  Sender: FDA-Public Use
  Company Number: US-EISAI MEDICAL RESEARCH-EC-2015-005937

PATIENT
  Age: 74 Year
  Sex: Female

DRUGS (30)
  1. LENVIMA [Suspect]
     Active Substance: LENVATINIB
     Indication: THYROID CANCER
     Route: 048
     Dates: start: 20150408, end: 20150421
  2. ENTOCORT [Concomitant]
     Active Substance: BUDESONIDE
  3. VENTOLIN HFA [Concomitant]
     Active Substance: ALBUTEROL SULFATE
  4. CALCIUM + D [Concomitant]
     Active Substance: CALCIUM\VITAMIN D
  5. MECLIZINE [Concomitant]
     Active Substance: MECLIZINE HYDROCHLORIDE
  6. HYDROCHLOROTHIAZIDE. [Concomitant]
     Active Substance: HYDROCHLOROTHIAZIDE
  7. ADVAIR DISKUS [Concomitant]
     Active Substance: FLUTICASONE PROPIONATE\SALMETEROL XINAFOATE
  8. SUMATRIPTAN SUCCINATE. [Concomitant]
     Active Substance: SUMATRIPTAN SUCCINATE
  9. LENVIMA [Suspect]
     Active Substance: LENVATINIB
     Route: 048
     Dates: start: 20150422, end: 20150512
  10. SYNTHROID [Concomitant]
     Active Substance: LEVOTHYROXINE SODIUM
  11. VALSARTAN. [Concomitant]
     Active Substance: VALSARTAN
  12. PRADAXA [Concomitant]
     Active Substance: DABIGATRAN ETEXILATE MESYLATE
  13. IPRATROPIUM BROMIDE. [Concomitant]
     Active Substance: IPRATROPIUM BROMIDE
  14. METOPROLOL SUCCINATE. [Concomitant]
     Active Substance: METOPROLOL SUCCINATE
  15. GABAPENTIN. [Concomitant]
     Active Substance: GABAPENTIN
  16. LENVIMA [Suspect]
     Active Substance: LENVATINIB
     Route: 048
     Dates: start: 20160217, end: 20160221
  17. LENVIMA [Suspect]
     Active Substance: LENVATINIB
     Route: 048
     Dates: start: 2017, end: 201708
  18. IMITREX [Concomitant]
     Active Substance: SUMATRIPTAN SUCCINATE
  19. THEO-24 [Concomitant]
     Active Substance: THEOPHYLLINE ANHYDROUS
  20. DOXYCYCLINE HYCLATE. [Concomitant]
     Active Substance: DOXYCYCLINE HYCLATE
  21. AMLODIPINE [Concomitant]
     Active Substance: AMLODIPINE BESYLATE
  22. LENVIMA [Suspect]
     Active Substance: LENVATINIB
     Route: 048
     Dates: start: 2015, end: 20160105
  23. LENVIMA [Suspect]
     Active Substance: LENVATINIB
     Route: 048
     Dates: start: 20160825, end: 20170316
  24. LENVIMA [Suspect]
     Active Substance: LENVATINIB
     Route: 048
     Dates: start: 201708
  25. LIDODERM [Concomitant]
     Active Substance: LIDOCAINE
  26. EPIPEN [Concomitant]
     Active Substance: EPINEPHRINE
  27. VITAMIN D [Concomitant]
     Active Substance: CHOLECALCIFEROL
  28. ALBUTEROL. [Concomitant]
     Active Substance: ALBUTEROL
  29. ZOFRAN [Concomitant]
     Active Substance: ONDANSETRON HYDROCHLORIDE
  30. BUDESONIDE. [Concomitant]
     Active Substance: BUDESONIDE

REACTIONS (22)
  - Pleural effusion [Unknown]
  - Lactic acidosis [Unknown]
  - Hypokalaemia [Unknown]
  - Blood pressure increased [Recovering/Resolving]
  - Ankle fracture [Recovering/Resolving]
  - Sepsis [Not Recovered/Not Resolved]
  - Acute kidney injury [Recovered/Resolved]
  - Diarrhoea [Not Recovered/Not Resolved]
  - Pulmonary mass [Unknown]
  - Hypotension [Not Recovered/Not Resolved]
  - Dehydration [Recovering/Resolving]
  - Malnutrition [Not Recovered/Not Resolved]
  - Malaise [Not Recovered/Not Resolved]
  - Aspiration [Not Recovered/Not Resolved]
  - Lung infiltration [Unknown]
  - Weight decreased [Not Recovered/Not Resolved]
  - Atrial fibrillation [Recovered/Resolved]
  - Haemoptysis [Unknown]
  - Vomiting [Recovering/Resolving]
  - Fatigue [Unknown]
  - Abdominal pain upper [Unknown]
  - Nausea [Recovering/Resolving]

NARRATIVE: CASE EVENT DATE: 2015
